FAERS Safety Report 7999844-9 (Version None)
Quarter: 2011Q4

REPORT INFORMATION
  Report Type: 
  Country: None (occurrence: None)
  Receive Date: 20111222
  Receipt Date: 20111212
  Transmission Date: 20120403
  Serious: No
  Sender: FDA-Public Use
  Company Number: US-BIOGENIDEC-2011BI021633

PATIENT
  Sex: Female

DRUGS (1)
  1. TYSABRI [Suspect]
     Indication: MULTIPLE SCLEROSIS
     Route: 042
     Dates: start: 20070731

REACTIONS (10)
  - POOR VENOUS ACCESS [None]
  - CYST [None]
  - LIPOMA [None]
  - PHARYNGITIS STREPTOCOCCAL [None]
  - SURGERY [None]
  - NASAL CYST [None]
  - NEOPLASM [None]
  - VAGINAL HAEMORRHAGE [None]
  - LYMPHADENOPATHY [None]
  - INFUSION SITE HAEMATOMA [None]
